FAERS Safety Report 15591890 (Version 1)
Quarter: 2018Q4

REPORT INFORMATION
  Report Type: Spontaneous
  Country: US (occurrence: US)
  Receive Date: 20181106
  Receipt Date: 20181106
  Transmission Date: 20190205
  Serious: No
  Sender: FDA-Public Use
  Company Number: US-MIST-TIR-2018-0600

PATIENT
  Age: 76 Year
  Sex: Female

DRUGS (3)
  1. TIROSINT [Suspect]
     Active Substance: LEVOTHYROXINE SODIUM
     Dosage: ONE 125MCG CAPSULE SIX DAYS PER WEEK AND ONE 137MCG CAPSULE ONE DAY PER WEEK
     Route: 048
     Dates: start: 201803
  2. TIROSINT [Suspect]
     Active Substance: LEVOTHYROXINE SODIUM
     Indication: HYPOTHYROIDISM
     Dosage: ONE 125MCG CAPSULE SIX DAYS PER WEEK AND ONE 137MCG CAPSULE ONE DAY PER WEEK
     Route: 048
     Dates: start: 201803
  3. TIROSINT [Suspect]
     Active Substance: LEVOTHYROXINE SODIUM
     Indication: HYPOTHYROIDISM
     Dosage: 125MCG DAILY
     Route: 048
     Dates: start: 2008, end: 201803

REACTIONS (2)
  - Drug level below therapeutic [Unknown]
  - Thyroid function test abnormal [Unknown]

NARRATIVE: CASE EVENT DATE: 201803
